FAERS Safety Report 8972242 (Version 1)
Quarter: 2012Q4

REPORT INFORMATION
  Report Type: Spontaneous
  Country: US (occurrence: None)
  Receive Date: 20121217
  Receipt Date: 20121217
  Transmission Date: 20130627
  Serious: Yes (Death)
  Sender: FDA-Public Use
  Company Number: None

PATIENT
  Age: 86 Year
  Sex: Female
  Weight: 91.17 kg

DRUGS (11)
  1. DECITABINE [Suspect]
     Indication: MDS
     Route: 058
     Dates: start: 20120721
  2. DECITABINE [Suspect]
     Indication: MDS
     Dates: start: 20120723
  3. DECITABINE [Suspect]
     Indication: MDS
     Dates: start: 20120726
  4. DECITABINE [Suspect]
     Indication: MDS
     Dates: start: 20120728
  5. PROMACTA [Concomitant]
  6. HYDREA [Concomitant]
  7. ACYCLOVIR [Concomitant]
  8. AMLODIPINE [Concomitant]
  9. MARINOL [Concomitant]
  10. ENULOSE [Concomitant]
  11. LISINOPRIL [Concomitant]

REACTIONS (4)
  - Urinary tract infection [None]
  - Gingival bleeding [None]
  - Disease progression [None]
  - Respiratory failure [None]
